FAERS Safety Report 19797807 (Version 1)
Quarter: 2021Q3

REPORT INFORMATION
  Report Type: Spontaneous
  Country: US (occurrence: US)
  Receive Date: 20210902
  Receipt Date: 20210902
  Transmission Date: 20211014
  Serious: No
  Sender: FDA-Public Use
  Company Number: None

PATIENT
  Sex: Male

DRUGS (2)
  1. COSENTYX [Suspect]
     Active Substance: SECUKINUMAB
     Indication: PSORIASIS
     Dosage: INJET 300MG SC ONCE WEEKLY FOR 2 WEEKS (WEEK 3 AND 4) THEN INJECT EVERY 4 WEEKS THEREAFTER
     Route: 058
     Dates: start: 202104
  2. COSENTYX [Suspect]
     Active Substance: SECUKINUMAB
     Indication: DERMATITIS ATOPIC
     Dosage: INJET 300MG SC ONCE WEEKLY FOR 2 WEEKS (WEEK 3 AND 4) THEN INJECT EVERY 4 WEEKS THEREAFTER
     Route: 058
     Dates: start: 202104

REACTIONS (1)
  - Drug ineffective [None]
